FAERS Safety Report 9916614 (Version 2)
Quarter: 2014Q1

REPORT INFORMATION
  Report Type: Spontaneous
  Country: NZ (occurrence: NZ)
  Receive Date: 20140221
  Receipt Date: 20140304
  Transmission Date: 20141002
  Serious: Yes (Death)
  Sender: FDA-Public Use
  Company Number: NZ-AMGEN-NZLSP2014012437

PATIENT
  Sex: Male

DRUGS (1)
  1. NEULASTIM [Suspect]
     Indication: NEUTROPENIA
     Dosage: UNK
     Route: 065

REACTIONS (1)
  - Neutropenic sepsis [Fatal]
